FAERS Safety Report 9788080 (Version 1)
Quarter: 2013Q4

REPORT INFORMATION
  Report Type: Spontaneous
  Country: US (occurrence: US)
  Receive Date: 20131230
  Receipt Date: 20131230
  Transmission Date: 20140711
  Serious: No
  Sender: FDA-Public Use
  Company Number: US-B.I. PHARMACEUTICALS,INC./RIDGEFIELD-2013-BI-42760BP

PATIENT
  Age: 77 Year
  Sex: Male
  Weight: 84 kg

DRUGS (11)
  1. PRADAXA [Suspect]
     Indication: ATRIAL FIBRILLATION
     Dosage: 300 MG
     Route: 048
     Dates: start: 201310
  2. DEPAKOTE [Concomitant]
     Indication: BIPOLAR DISORDER
     Dosage: 500 MG
     Route: 048
  3. CLARITIN [Concomitant]
     Indication: SEASONAL ALLERGY
     Dosage: 1 ANZ
     Route: 048
  4. CILIAS [Concomitant]
     Indication: PROSTATOMEGALY
     Dosage: 5 MG
     Route: 048
  5. PROSCAR [Concomitant]
     Indication: PROSTATOMEGALY
     Dosage: 5 MG
     Route: 048
  6. LIPITOR [Concomitant]
     Indication: BLOOD CHOLESTEROL INCREASED
     Dosage: 10 MG
     Route: 048
  7. AZELASTINE HYDROCHLORIDE OPHTHALMIC SOLUTION, 0.05% [Concomitant]
     Indication: SEASONAL ALLERGY
     Dosage: STRENGTH: 1 DROP EACH EYE; DAILY DOSE: 2 DROPS EACH EYE,FORMULATION: OPHTHALMIC SOLUTION
  8. ATENOLOL [Concomitant]
     Indication: ATRIAL FIBRILLATION
     Dosage: 50 MG
     Route: 048
  9. BENICAR HCT [Concomitant]
     Indication: HYPERTENSION
     Dosage: STRENGTH: 40 MG /12.5 MG; DAILY DOSE: 40 MG / 12.5 MG
     Route: 048
  10. CYMBALTA [Concomitant]
     Indication: SPINAL COLUMN STENOSIS
     Dosage: 60 MG
     Route: 048
     Dates: start: 201308, end: 20131210
  11. ULORIC [Concomitant]
     Indication: GOUT
     Dosage: 40 MG
     Route: 048

REACTIONS (2)
  - Dyspepsia [Not Recovered/Not Resolved]
  - Blood glucose increased [Not Recovered/Not Resolved]
